FAERS Safety Report 11265060 (Version 2)
Quarter: 2015Q4

REPORT INFORMATION
  Report Type: Report from Study
  Country: VE (occurrence: VE)
  Receive Date: 20150713
  Receipt Date: 20151001
  Transmission Date: 20160304
  Serious: Yes (Hospitalization)
  Sender: FDA-Public Use
  Company Number: PHHY2015VE075438

PATIENT
  Age: 60 Year
  Sex: Female

DRUGS (15)
  1. GALVUS MET [Suspect]
     Active Substance: METFORMIN HYDROCHLORIDE\VILDAGLIPTIN
     Indication: DIABETES MELLITUS
     Dosage: METFORMIN 850MG/ VIDAGLIPTIN 50MG
     Route: 048
     Dates: start: 201501
  2. DIOVAN [Suspect]
     Active Substance: VALSARTAN
     Indication: BLOOD PRESSURE INCREASED
  3. PROSTACYCLIN [Concomitant]
     Active Substance: EPOPROSTENOL
     Indication: VENOUS OCCLUSION
     Dosage: 100 MG, Q8H
     Route: 065
  4. XOLAIR [Suspect]
     Active Substance: OMALIZUMAB
     Dosage: 300 MG, QMO (IN THE ARM)
     Route: 058
  5. ELANTAN [Concomitant]
     Active Substance: ISOSORBIDE MONONITRATE
     Indication: TACHYCARDIA
     Dosage: 40 MG, QD
     Route: 065
     Dates: start: 2006
  6. LASIX [Concomitant]
     Active Substance: FUROSEMIDE
     Indication: FLUID RETENTION
     Dosage: 40 MG, QD
     Route: 065
     Dates: start: 201411
  7. DIOVAN [Suspect]
     Active Substance: VALSARTAN
     Indication: HYPERTENSION
     Dosage: 80 MG, QD
     Route: 048
     Dates: start: 2012
  8. ONBREZ BREEZHALER [Suspect]
     Active Substance: INDACATEROL
     Indication: CHRONIC OBSTRUCTIVE PULMONARY DISEASE
     Dosage: 300 MG, QD
     Route: 055
     Dates: start: 2014
  9. ASAPROL [Concomitant]
     Indication: CARDIAC DISORDER
     Dosage: 81 MG, QD
     Route: 065
     Dates: start: 2006
  10. XOLAIR [Suspect]
     Active Substance: OMALIZUMAB
     Indication: CHRONIC OBSTRUCTIVE PULMONARY DISEASE
     Dosage: 150 MG, QMO (15 YEARS AGO APPROX)
     Route: 058
  11. ONBREZ [Suspect]
     Active Substance: INDACATEROL
     Indication: CHRONIC OBSTRUCTIVE PULMONARY DISEASE
     Dosage: UNK, QD
     Route: 055
     Dates: start: 2015
  12. XOLAIR [Suspect]
     Active Substance: OMALIZUMAB
     Dosage: 600 MG, QMO
     Route: 058
     Dates: start: 20150610
  13. MIFLONIDE [Suspect]
     Active Substance: BUDESONIDE
     Indication: CHRONIC OBSTRUCTIVE PULMONARY DISEASE
     Dosage: UNK, QD
     Route: 048
     Dates: start: 201501
  14. PENTOXIFYLLINE. [Concomitant]
     Active Substance: PENTOXIFYLLINE
     Indication: PERIPHERAL VASCULAR DISORDER
     Dosage: 300 MG, QD
     Route: 065
     Dates: start: 201501
  15. ASAPROL [Concomitant]
     Indication: ANTICOAGULANT THERAPY

REACTIONS (6)
  - Dyspnoea [Recovered/Resolved]
  - Off label use [Unknown]
  - Arthralgia [Recovering/Resolving]
  - Dysstasia [Recovering/Resolving]
  - Pain [Unknown]
  - Angina pectoris [Recovering/Resolving]

NARRATIVE: CASE EVENT DATE: 20150626
